FAERS Safety Report 9784932 (Version 1)
Quarter: 2013Q4

REPORT INFORMATION
  Report Type: Report from Study
  Country: US (occurrence: US)
  Receive Date: 20131227
  Receipt Date: 20131227
  Transmission Date: 20140711
  Serious: Yes (Other)
  Sender: FDA-Public Use
  Company Number: US-ROCHE-1321788

PATIENT
  Sex: Male
  Weight: 8.6 kg

DRUGS (4)
  1. NUTROPIN AQ [Suspect]
     Indication: SMALL FOR DATES BABY
     Route: 058
     Dates: start: 201003
  2. PROVENTIL [Concomitant]
  3. QVAR [Concomitant]
     Route: 055
  4. SINGULAIR [Concomitant]
     Route: 065

REACTIONS (5)
  - Developmental delay [Unknown]
  - Food allergy [Unknown]
  - Weight gain poor [Unknown]
  - Decreased appetite [Unknown]
  - Asthma [Unknown]
